FAERS Safety Report 9366777 (Version 1)
Quarter: 2013Q2

REPORT INFORMATION
  Report Type: Spontaneous
  Country: US (occurrence: US)
  Receive Date: 20130625
  Receipt Date: 20130625
  Transmission Date: 20140414
  Serious: No
  Sender: FDA-Public Use
  Company Number: US-009507513-1306USA009967

PATIENT
  Age: 66 Year
  Sex: Male

DRUGS (3)
  1. PROSCAR [Suspect]
     Indication: PROSTATOMEGALY
     Dosage: 5 MG, UNK 1 STANDARD PACKAGE BOTTLE OF 30
     Route: 048
     Dates: start: 2003
  2. FLOMAX (MORNIFLUMATE) [Concomitant]
     Dosage: UNK
  3. [COMPOSITION UNSPECIFIED] [Concomitant]
     Indication: HYPOTONIA
     Dosage: UNK

REACTIONS (3)
  - Rectal discharge [Unknown]
  - Sexual dysfunction [Unknown]
  - Erectile dysfunction [Unknown]
